FAERS Safety Report 6854127-5 (Version None)
Quarter: 2010Q3

REPORT INFORMATION
  Report Type: 
  Country: None (occurrence: None)
  Receive Date: 20100717
  Receipt Date: 20080204
  Transmission Date: 20110219
  Serious: No
  Sender: FDA-Public Use
  Company Number: US-PFIZER INC-2007102987

PATIENT
  Sex: Female
  Weight: 73.9 kg

DRUGS (5)
  1. CHANTIX [Suspect]
     Indication: SMOKING CESSATION THERAPY
     Dates: start: 20071101, end: 20071101
  2. SEROQUEL [Concomitant]
     Indication: SCHIZOAFFECTIVE DISORDER
  3. GEODON [Concomitant]
     Indication: SCHIZOAFFECTIVE DISORDER
  4. LOPID [Concomitant]
     Indication: HYPERTENSION
  5. LISINOPRIL [Concomitant]
     Indication: HYPERTENSION

REACTIONS (1)
  - NAUSEA [None]
